FAERS Safety Report 14125904 (Version 3)
Quarter: 2018Q1

REPORT INFORMATION
  Report Type: Report from Study
  Country: IN (occurrence: IN)
  Receive Date: 20171025
  Receipt Date: 20180304
  Transmission Date: 20180508
  Serious: Yes (Other)
  Sender: FDA-Public Use
  Company Number: PHHY2017IN155684

PATIENT
  Sex: Male

DRUGS (2)
  1. GLIVEC [Suspect]
     Active Substance: IMATINIB MESYLATE
     Indication: CHRONIC MYELOID LEUKAEMIA
     Dosage: 400 MG, UNK
     Route: 048
  2. GLIVEC [Suspect]
     Active Substance: IMATINIB MESYLATE
     Dosage: 800 MG, UNK
     Route: 048

REACTIONS (8)
  - Nasopharyngitis [Unknown]
  - Pain [Unknown]
  - Pyrexia [Unknown]
  - Drug resistance [Unknown]
  - Cytogenetic analysis abnormal [Unknown]
  - Cough [Unknown]
  - Bone neoplasm [Unknown]
  - Second primary malignancy [Unknown]
